FAERS Safety Report 8843665 (Version 1)
Quarter: 2012Q4

REPORT INFORMATION
  Report Type: 
  Country: US (occurrence: US)
  Receive Date: 20121016
  Receipt Date: 20121016
  Transmission Date: 20130627
  Serious: Yes (Other)
  Sender: FDA-Public Use
  Company Number: US-ROCHE-1132735

PATIENT
  Sex: Male
  Weight: 7.9 kg

DRUGS (3)
  1. NUTROPIN AQ [Suspect]
     Indication: HYPOPITUITARISM
     Route: 058
  2. SYNTHROID [Concomitant]
     Route: 065
  3. TESTOSTERONE ENANTHATE [Concomitant]

REACTIONS (3)
  - Developmental delay [Unknown]
  - Cardiac murmur [Unknown]
  - Deformity thorax [Unknown]
